FAERS Safety Report 8487616-0 (Version None)
Quarter: 2012Q3

REPORT INFORMATION
  Report Type: 
  Country: None (occurrence: None)
  Receive Date: 20120705
  Receipt Date: 20120626
  Transmission Date: 20120928
  Serious: Yes (Hospitalization)
  Sender: FDA-Public Use
  Company Number: US-BAYER-2012-038126

PATIENT
  Age: 35 Year
  Sex: Female
  Weight: 68 kg

DRUGS (17)
  1. NSAID'S [Concomitant]
     Dosage: UNK
     Dates: start: 19820101
  2. FLEXERIL [Concomitant]
  3. HYDROCODONE BITARTRATE [Concomitant]
  4. IMITREX [Concomitant]
     Dosage: UNK
     Dates: start: 20060811, end: 20070605
  5. CHANTIX [Concomitant]
  6. WELLBUTRIN [Concomitant]
     Dosage: UNK
     Dates: start: 20070622
  7. SARAFEM [Concomitant]
     Indication: DEPRESSION
  8. DIFLUCAN [Concomitant]
     Dosage: 150 G, UNK
  9. AMITRIPTYLINE HCL [Concomitant]
     Dosage: 25 MG, UNK
  10. LORCET-HD [Concomitant]
     Dosage: UNK
     Dates: start: 20070718
  11. MULTI-VITAMIN [Concomitant]
  12. NAPROXEN (ALEVE) [Concomitant]
  13. YASMIN [Suspect]
     Indication: PREMENSTRUAL SYNDROME
  14. YASMIN [Suspect]
  15. SARAFEM [Concomitant]
     Indication: PREMENSTRUAL SYNDROME
     Dosage: UNK
     Dates: start: 20060101
  16. ASPIRIN [Concomitant]
  17. YASMIN [Suspect]
     Indication: CONTRACEPTION
     Dosage: UNK
     Dates: start: 20060501, end: 20070701

REACTIONS (7)
  - INJURY [None]
  - EMOTIONAL DISTRESS [None]
  - NERVOUSNESS [None]
  - DEEP VEIN THROMBOSIS [None]
  - DEPRESSION [None]
  - FEAR OF DEATH [None]
  - PAIN IN EXTREMITY [None]
